FAERS Safety Report 8093994-7 (Version None)
Quarter: 2012Q1

REPORT INFORMATION
  Report Type: 
  Country: None (occurrence: None)
  Receive Date: 20120130
  Receipt Date: 20120119
  Transmission Date: 20120608
  Serious: Yes (Hospitalization)
  Sender: FDA-Public Use
  Company Number: CA-BRISTOL-MYERS SQUIBB COMPANY-16298861

PATIENT
  Age: 64 Year
  Sex: Male
  Weight: 84 kg

DRUGS (11)
  1. ERBITUX [Suspect]
     Indication: HEAD AND NECK CANCER
     Dosage: REGIMEN 1 100MG/M2, D1:28NOV11-28NOV11.
     Route: 042
     Dates: start: 20111128, end: 20111128
  2. CISPLATIN [Suspect]
     Indication: HEAD AND NECK CANCER
     Dosage: REGIMEN 1
     Route: 042
     Dates: start: 20111128, end: 20111128
  3. IMOVANE [Concomitant]
     Indication: INSOMNIA
     Dates: start: 20111001
  4. POTASSIUM CHLORIDE [Concomitant]
     Dates: start: 20111205
  5. FLAGYL [Concomitant]
     Indication: INFECTION
     Dates: start: 20111205
  6. ANTIBIOTICS [Concomitant]
  7. FLUOROURACIL [Suspect]
     Indication: HEAD AND NECK CANCER
     Dosage: REGIMEN 1,03DEC11 5 DYAS
     Route: 042
     Dates: start: 20111129, end: 20111203
  8. CIPROFLOXACIN [Concomitant]
     Indication: INFECTION
     Dates: start: 20111205
  9. SALINE [Concomitant]
     Dates: start: 20111205
  10. HEPARIN [Concomitant]
  11. ACETAMINOPHEN [Concomitant]
     Indication: PAIN
     Dates: start: 20110501

REACTIONS (2)
  - DUODENAL PERFORATION [None]
  - UPPER GASTROINTESTINAL HAEMORRHAGE [None]
